FAERS Safety Report 5216369-4 (Version None)
Quarter: 2007Q1

REPORT INFORMATION
  Report Type: 
  Country: None (occurrence: None)
  Receive Date: 20061124
  Receipt Date: 20060804
  Transmission Date: 20070707
  Serious: Yes (Other)
  Sender: FDA-Public Use
  Company Number: WAES 0607USA03236

PATIENT
  Age: 43 Year
  Sex: Male
  Weight: 136.9863 kg

DRUGS (3)
  1. VYTORIN [Suspect]
     Indication: LIPIDS INCREASED
     Dosage: 10-20 MG/DAILY/PO
     Route: 048
     Dates: start: 20041201, end: 20050502
  2. PRINIVIL [Concomitant]
  3. METFORMIN HCL [Concomitant]

REACTIONS (3)
  - ALANINE AMINOTRANSFERASE INCREASED [None]
  - ASPARTATE AMINOTRANSFERASE INCREASED [None]
  - BLOOD CREATINE PHOSPHOKINASE INCREASED [None]
